FAERS Safety Report 22198017 (Version 3)
Quarter: 2023Q4

REPORT INFORMATION
  Report Type: Spontaneous
  Country: US (occurrence: US)
  Receive Date: 20230411
  Receipt Date: 20231215
  Transmission Date: 20240109
  Serious: No
  Sender: FDA-Public Use
  Company Number: US-BIOGEN-2023BI01198737

PATIENT
  Age: 63 Year
  Sex: Male

DRUGS (16)
  1. AVONEX PEN [Suspect]
     Active Substance: INTERFERON BETA-1A
     Indication: Multiple sclerosis
     Dosage: INJECT 30 MCG (1 PEN)?INTRAMUSCULARLY?ONCE WEEKLY
     Route: 050
  2. AVONEX PEN [Suspect]
     Active Substance: INTERFERON BETA-1A
  3. AVONEX PEN [Suspect]
     Active Substance: INTERFERON BETA-1A
  4. AVONEX PEN [Suspect]
     Active Substance: INTERFERON BETA-1A
  5. ARMODAFINIL [Concomitant]
     Active Substance: ARMODAFINIL
     Route: 050
  6. CRESTOR [Concomitant]
     Active Substance: ROSUVASTATIN CALCIUM
     Route: 050
  7. ASPIRIN [Concomitant]
     Active Substance: ASPIRIN
     Route: 050
  8. OMEPRAZOLE [Concomitant]
     Active Substance: OMEPRAZOLE
     Route: 050
  9. METFORMIN HYDROCHLORIDE [Concomitant]
     Active Substance: METFORMIN HYDROCHLORIDE
     Route: 050
  10. TAMSULOSIN HYDROCHLORIDE [Concomitant]
     Active Substance: TAMSULOSIN HYDROCHLORIDE
     Route: 050
  11. MAGNESIUM [Concomitant]
     Active Substance: MAGNESIUM
     Route: 050
  12. INDOMETHACIN [Concomitant]
     Active Substance: INDOMETHACIN
     Route: 050
  13. VITAMIN C [Concomitant]
     Active Substance: ASCORBIC ACID
     Route: 050
  14. LOSARTAN POTASSIUM [Concomitant]
     Active Substance: LOSARTAN POTASSIUM
     Route: 050
  15. CALCIUM GLUCONATE [Concomitant]
     Active Substance: CALCIUM GLUCONATE
     Route: 050
  16. D2000 ULTRA STRENGTH [Concomitant]
     Route: 050

REACTIONS (6)
  - Product dose omission issue [Unknown]
  - Balance disorder [Unknown]
  - Feeling abnormal [Unknown]
  - Nasopharyngitis [Recovered/Resolved]
  - Malaise [Not Recovered/Not Resolved]
  - Pain in extremity [Unknown]

NARRATIVE: CASE EVENT DATE: 20230401
